FAERS Safety Report 5907014-0 (Version None)
Quarter: 2008Q4

REPORT INFORMATION
  Report Type: 
  Country: None (occurrence: None)
  Receive Date: 20081002
  Receipt Date: 20081002
  Transmission Date: 20090506
  Serious: Yes (Other)
  Sender: FDA-Public Use
  Company Number: None

PATIENT
  Age: 4 Year
  Sex: Male
  Weight: 40.8237 kg

DRUGS (1)
  1. SINGULAIR [Suspect]
     Dates: start: 20040301, end: 20080924

REACTIONS (8)
  - ABNORMAL BEHAVIOUR [None]
  - ABNORMAL DREAMS [None]
  - ANGER [None]
  - FEAR [None]
  - HOMICIDAL IDEATION [None]
  - PAIN IN EXTREMITY [None]
  - SUICIDAL IDEATION [None]
  - WEIGHT ABNORMAL [None]
